FAERS Safety Report 8425750-1 (Version None)
Quarter: 2012Q2

REPORT INFORMATION
  Report Type: 
  Country: None (occurrence: None)
  Receive Date: 20120611
  Receipt Date: 20120607
  Transmission Date: 20120825
  Serious: Yes (Life-Threatening, Hospitalization, Other)
  Sender: FDA-Public Use
  Company Number: PHHY2012JP033609

PATIENT
  Sex: Male

DRUGS (8)
  1. DIOVAN HCT [Suspect]
     Indication: HYPERTENSION
     Dosage: 1 DF (80 MG VALSAR AND 12.5 MG HYDRO), DAILY
     Route: 048
     Dates: start: 20120301, end: 20120412
  2. DIOVAN [Suspect]
     Indication: HYPERTENSION
     Dosage: 80 MG, DAILY
     Route: 048
     Dates: start: 20120201, end: 20120229
  3. LAC B [Concomitant]
     Dosage: 3 G, UNK
     Route: 048
     Dates: start: 20120201
  4. DAI-KENCHU-TO [Concomitant]
     Dosage: 7.5 G, UNK
     Route: 048
     Dates: start: 20120201
  5. MAGLAX [Concomitant]
     Dosage: 750 MG, UNK
     Route: 048
     Dates: start: 20120201
  6. URSO 250 [Concomitant]
     Dosage: 300 MG, UNK
     Route: 048
     Dates: start: 20120329
  7. AMLODIPINE [Concomitant]
     Dosage: 5 MG, UNK
     Route: 048
     Dates: start: 20120329
  8. DIOVAN [Suspect]
     Dosage: 80 MG, DAILY
     Route: 048
     Dates: start: 20120412

REACTIONS (4)
  - ANAEMIA [None]
  - EPISTAXIS [None]
  - HYPONATRAEMIA [None]
  - IDIOPATHIC THROMBOCYTOPENIC PURPURA [None]
